FAERS Safety Report 4815728-9 (Version None)
Quarter: 2005Q4

REPORT INFORMATION
  Report Type: 
  Country: None (occurrence: None)
  Receive Date: 20051031
  Receipt Date: 20051005
  Transmission Date: 20060501
  Serious: Yes (Hospitalization)
  Sender: FDA-Public Use
  Company Number: 2005AP05277

PATIENT
  Age: 26648 Day
  Sex: Male

DRUGS (8)
  1. CASODEX [Suspect]
     Indication: PROSTATE CANCER
     Route: 048
     Dates: start: 20050627, end: 20050916
  2. ZOLADEX [Concomitant]
     Indication: PROSTATE CANCER
     Route: 058
     Dates: start: 20050719, end: 20050916
  3. GASTER D [Concomitant]
     Route: 048
     Dates: start: 20030101, end: 20050408
  4. GASTER D [Concomitant]
     Route: 048
     Dates: start: 20050520, end: 20050921
  5. OMEPRAL [Concomitant]
     Route: 048
     Dates: start: 20050409, end: 20050519
  6. BLOPRESS [Concomitant]
     Route: 048
  7. NORVASC [Concomitant]
     Route: 048
  8. ALLOPURINOL [Concomitant]
     Route: 048
     Dates: end: 20050921

REACTIONS (6)
  - ANAEMIA [None]
  - HEPATIC FAILURE [None]
  - HEPATIC FUNCTION ABNORMAL [None]
  - LIVER DISORDER [None]
  - PLATELET COUNT DECREASED [None]
  - RENAL IMPAIRMENT [None]
